FAERS Safety Report 4279100-5 (Version None)
Quarter: 2004Q1

REPORT INFORMATION
  Report Type: 
  Country: None (occurrence: None)
  Receive Date: 20040122
  Receipt Date: 20040106
  Transmission Date: 20041129
  Serious: Yes (Other)
  Sender: FDA-Public Use
  Company Number: 181590

PATIENT
  Age: 55 Year
  Sex: Female

DRUGS (8)
  1. AVONEX [Suspect]
     Indication: MULTIPLE SCLEROSIS
     Dosage: 30 MCG QW IM
     Route: 030
     Dates: start: 20030929, end: 20030929
  2. AVONEX [Suspect]
     Indication: MULTIPLE SCLEROSIS
     Dosage: 15 MCG QW IM
     Route: 030
     Dates: start: 20031014, end: 20031117
  3. LESCOL ^SANDOZ^ [Concomitant]
  4. TOPROL-XL [Concomitant]
  5. PREMARIN [Concomitant]
  6. ACTOS / USA / [Concomitant]
  7. ALTACE [Concomitant]
  8. XANAX [Concomitant]

REACTIONS (13)
  - APHASIA [None]
  - CHILLS [None]
  - CONVULSION [None]
  - DRUG HYPERSENSITIVITY [None]
  - DYSKINESIA [None]
  - DYSPNOEA [None]
  - FATIGUE [None]
  - FEELING ABNORMAL [None]
  - MEDICATION ERROR [None]
  - NAUSEA [None]
  - PYREXIA [None]
  - SWOLLEN TONGUE [None]
  - TREMOR [None]
